FAERS Safety Report 22159043 (Version 3)
Quarter: 2023Q2

REPORT INFORMATION
  Report Type: Report from Study
  Country: US (occurrence: US)
  Receive Date: 20230331
  Receipt Date: 20230616
  Transmission Date: 20230722
  Serious: No
  Sender: FDA-Public Use
  Company Number: US-002147023-NVSC2023US070722

PATIENT
  Sex: Female

DRUGS (2)
  1. KESIMPTA [Suspect]
     Active Substance: OFATUMUMAB
     Indication: Product used for unknown indication
     Dosage: UNK (IN HCP OFFICE)
     Route: 065
     Dates: start: 20230313
  2. KESIMPTA [Suspect]
     Active Substance: OFATUMUMAB
     Dosage: UNK (BY SELF-INJECTION)
     Route: 065
     Dates: start: 20230320

REACTIONS (3)
  - Asthenia [Unknown]
  - Fatigue [Unknown]
  - Chills [Unknown]
